FAERS Safety Report 18302263 (Version 2)
Quarter: 2020Q4

REPORT INFORMATION
  Report Type: Spontaneous
  Country: US (occurrence: US)
  Receive Date: 20200923
  Receipt Date: 20201023
  Transmission Date: 20210113
  Serious: No
  Sender: FDA-Public Use
  Company Number: US-VERTEX PHARMACEUTICALS-2020-014784

PATIENT
  Sex: Male
  Weight: 95 kg

DRUGS (2)
  1. TRIKAFTA [Suspect]
     Active Substance: ELEXACAFTOR\IVACAFTOR\TEZACAFTOR
     Indication: CYSTIC FIBROSIS
     Dosage: 2 TABS (100MG ELEXACAFTOR/50MG TEZACAFTOR/75MG IVACAFTOR AM; 1 TAB (150MG IVACAFTOR) PM
     Route: 048
     Dates: start: 20200108
  2. VITAMIN D [COLECALCIFEROL] [Concomitant]
     Active Substance: CHOLECALCIFEROL
     Dosage: 10 MICROGRAM TABLET

REACTIONS (6)
  - Thinking abnormal [Unknown]
  - Abdominal pain upper [Recovered/Resolved]
  - Disturbance in attention [Not Recovered/Not Resolved]
  - Sputum increased [Unknown]
  - Emergency care [Unknown]
  - Feeling abnormal [Not Recovered/Not Resolved]

NARRATIVE: CASE EVENT DATE: 2020
